FAERS Safety Report 25840114 (Version 1)
Quarter: 2025Q3

REPORT INFORMATION
  Report Type: Spontaneous
  Country: US (occurrence: US)
  Receive Date: 20250924
  Receipt Date: 20250924
  Transmission Date: 20251020
  Serious: Yes (Other)
  Sender: ALEXION PHARMACEUTICALS
  Company Number: US-AstraZeneca-CH-00955043A

PATIENT
  Sex: Female

DRUGS (1)
  1. BUDESONIDE\FORMOTEROL [Suspect]
     Active Substance: BUDESONIDE\FORMOTEROL
     Route: 065

REACTIONS (9)
  - Product taste abnormal [Unknown]
  - Device defective [Unknown]
  - Choking [Unknown]
  - Confusional state [Unknown]
  - Memory impairment [Unknown]
  - Cough [Unknown]
  - Product after taste [Unknown]
  - Gingival pain [Unknown]
  - Nasal discomfort [Unknown]
